FAERS Safety Report 10507136 (Version 2)
Quarter: 2014Q4

REPORT INFORMATION
  Report Type: Report from Study
  Country: SI (occurrence: SI)
  Receive Date: 20141009
  Receipt Date: 20141024
  Transmission Date: 20150528
  Serious: Yes (Other)
  Sender: FDA-Public Use
  Company Number: SI-BAYER-2014-147096

PATIENT
  Age: 54 Year
  Sex: Male

DRUGS (1)
  1. NEXAVAR [Suspect]
     Active Substance: SORAFENIB
     Indication: HEPATOCELLULAR CARCINOMA
     Dosage: 400 MG, BID
     Route: 048

REACTIONS (5)
  - Rash [None]
  - Skin reaction [None]
  - Stomatitis [None]
  - Skin reaction [None]
  - Inflammation [None]

NARRATIVE: CASE EVENT DATE: 20140909
